FAERS Safety Report 8208481-2 (Version None)
Quarter: 2012Q1

REPORT INFORMATION
  Report Type: 
  Country: None (occurrence: None)
  Receive Date: 20120314
  Receipt Date: 20120303
  Transmission Date: 20120608
  Serious: Yes (Hospitalization)
  Sender: FDA-Public Use
  Company Number: DK-BRACCO-000087

PATIENT
  Age: 66 Year
  Sex: Male

DRUGS (1)
  1. BARIUM SULFATE [Suspect]
     Indication: X-RAY GASTROINTESTINAL TRACT

REACTIONS (1)
  - BEZOAR [None]
